FAERS Safety Report 12434279 (Version 2)
Quarter: 2016Q2

REPORT INFORMATION
  Report Type: Spontaneous
  Country: US (occurrence: US)
  Receive Date: 20160603
  Receipt Date: 20160610
  Transmission Date: 20160815
  Serious: No
  Sender: FDA-Public Use
  Company Number: US-CELGENEUS-USA-2016033208

PATIENT
  Sex: Male
  Weight: 84.54 kg

DRUGS (4)
  1. REVLIMID [Suspect]
     Active Substance: LENALIDOMIDE
     Indication: PLASMA CELL MYELOMA
     Route: 048
     Dates: start: 20160225, end: 20160511
  2. REVLIMID [Suspect]
     Active Substance: LENALIDOMIDE
     Route: 048
     Dates: start: 20160523
  3. DEXAMETHASONE. [Concomitant]
     Active Substance: DEXAMETHASONE
     Indication: PRODUCT USED FOR UNKNOWN INDICATION
     Route: 048
  4. DEXAMETHASONE. [Concomitant]
     Active Substance: DEXAMETHASONE
     Route: 048
     Dates: start: 201604

REACTIONS (8)
  - Pruritus [Recovered/Resolved]
  - Back pain [Unknown]
  - Decreased appetite [Unknown]
  - Rash erythematous [Recovered/Resolved]
  - Arthralgia [Unknown]
  - Weight decreased [Unknown]
  - Blood glucose increased [Unknown]
  - Irritability [Unknown]

NARRATIVE: CASE EVENT DATE: 2016
